FAERS Safety Report 19976100 (Version 3)
Quarter: 2021Q4

REPORT INFORMATION
  Report Type: Spontaneous
  Country: US (occurrence: US)
  Receive Date: 20211021
  Receipt Date: 20211221
  Transmission Date: 20220303
  Serious: No
  Sender: FDA-Public Use
  Company Number: US-SA-SAC20211015000331

PATIENT
  Age: 73 Year
  Sex: Female

DRUGS (1)
  1. DUPIXENT [Suspect]
     Active Substance: DUPILUMAB
     Indication: Dermatitis atopic
     Dosage: 600 MG, 1X
     Route: 058
     Dates: start: 20211003, end: 20211003

REACTIONS (3)
  - Pruritus [Unknown]
  - Skin haemorrhage [Unknown]
  - Dry skin [Unknown]

NARRATIVE: CASE EVENT DATE: 20211001
